FAERS Safety Report 9794723 (Version 1)
Quarter: 2014Q1

REPORT INFORMATION
  Report Type: Spontaneous
  Country: US (occurrence: US)
  Receive Date: 20140102
  Receipt Date: 20140102
  Transmission Date: 20141002
  Serious: No
  Sender: FDA-Public Use
  Company Number: US-PFIZER INC-2013374499

PATIENT
  Age: 41 Year
  Sex: Female
  Weight: 72.56 kg

DRUGS (2)
  1. PREMPRO [Suspect]
     Indication: HOT FLUSH
     Dosage: 0.625/2.5 MG (ESTROGENS CONJUGATED 0.625MG / MEDROXYPROGESTERONE ACETATE 2.5MG)
     Dates: start: 1986
  2. PREDNISONE [Concomitant]
     Indication: MYALGIA
     Dosage: UNK

REACTIONS (1)
  - Fibromyalgia [Unknown]
